FAERS Safety Report 10276710 (Version 1)
Quarter: 2014Q3

REPORT INFORMATION
  Report Type: Spontaneous
  Country: US (occurrence: US)
  Receive Date: 20140703
  Receipt Date: 20140703
  Transmission Date: 20150326
  Serious: No
  Sender: FDA-Public Use
  Company Number: US-009507513-1407USA001308

PATIENT
  Age: 30 Year
  Sex: Female
  Weight: 111.57 kg

DRUGS (1)
  1. NEXPLANON [Suspect]
     Active Substance: ETONOGESTREL
     Indication: CONTRACEPTION
     Dosage: UNK
     Route: 059
     Dates: start: 20140319

REACTIONS (1)
  - Menstruation irregular [Unknown]

NARRATIVE: CASE EVENT DATE: 201406
